FAERS Safety Report 6051855-9 (Version None)
Quarter: 2009Q1

REPORT INFORMATION
  Report Type: 
  Country: None (occurrence: None)
  Receive Date: 20090126
  Receipt Date: 20090112
  Transmission Date: 20090719
  Serious: Yes (Death, Hospitalization, Other)
  Sender: FDA-Public Use
  Company Number: US-ROCHE-607782

PATIENT
  Age: 48 Year
  Sex: Male

DRUGS (10)
  1. COPEGUS [Suspect]
     Indication: DRUG USE FOR UNKNOWN INDICATION
     Dosage: ROUTE REPORTED AS INGESTION, OVERDOSE
     Route: 048
  2. COPEGUS [Suspect]
     Route: 048
  3. HYDROCODONE BITARTRATE [Suspect]
     Indication: DRUG USE FOR UNKNOWN INDICATION
     Dosage: ROUTE REPORTED AS INGESTION, OVERDOSE
     Route: 048
  4. HYDROCODONE BITARTRATE [Suspect]
     Route: 048
  5. ALPRAZOLAM [Suspect]
     Indication: DRUG USE FOR UNKNOWN INDICATION
     Dosage: ROUTE REPORTED AS INGESTION, OVERDOSE
     Route: 048
  6. ALPRAZOLAM [Suspect]
     Dosage: ROUTE REPORTED AS INGESTION, OVERDOSE
     Route: 048
  7. PROMETHAZINE [Suspect]
     Indication: DRUG USE FOR UNKNOWN INDICATION
     Dosage: ROUTE REPORTED AS INGESTION, OVERDOSE
     Route: 048
  8. PROMETHAZINE [Suspect]
     Route: 048
  9. TADALAFIL [Suspect]
     Indication: DRUG USE FOR UNKNOWN INDICATION
     Dosage: ROUTE REPORTED AS INGESTION, OVERDOSE
     Route: 048
  10. TADALAFIL [Suspect]
     Route: 048

REACTIONS (3)
  - CARDIAC ARREST [None]
  - COMPLETED SUICIDE [None]
  - RESPIRATORY ARREST [None]
